FAERS Safety Report 7859624-1 (Version None)
Quarter: 2011Q4

REPORT INFORMATION
  Report Type: 
  Country: None (occurrence: None)
  Receive Date: 20111026
  Receipt Date: 20111026
  Transmission Date: 20120403
  Serious: Yes (Hospitalization)
  Sender: FDA-Public Use
  Company Number: None

PATIENT
  Age: 69 Year
  Sex: Male
  Weight: 115.5 kg

DRUGS (1)
  1. MORPHINE [Suspect]
     Indication: PAIN
     Dosage: 1 TAB BID PO
     Route: 048
     Dates: start: 20000104

REACTIONS (2)
  - TREATMENT NONCOMPLIANCE [None]
  - CONSTIPATION [None]
